FAERS Safety Report 15044724 (Version 3)
Quarter: 2019Q1

REPORT INFORMATION
  Report Type: Spontaneous
  Country: US (occurrence: US)
  Receive Date: 20180621
  Receipt Date: 20190225
  Transmission Date: 20190417
  Serious: Yes (Other)
  Sender: FDA-Public Use
  Company Number: US-009507513-1806USA005135

PATIENT
  Age: 15 Year
  Sex: Female
  Weight: 80.73 kg

DRUGS (1)
  1. NEXPLANON [Suspect]
     Active Substance: ETONOGESTREL
     Indication: CONTRACEPTION
     Dosage: 1 IMPLANT IN LEFT ARM
     Route: 059
     Dates: start: 201709

REACTIONS (5)
  - Unintended pregnancy [Unknown]
  - Nausea [Not Recovered/Not Resolved]
  - Product administration error [Unknown]
  - Complication associated with device [Not Recovered/Not Resolved]
  - Pregnancy with implant contraceptive [Unknown]

NARRATIVE: CASE EVENT DATE: 201709
